FAERS Safety Report 14158900 (Version 2)
Quarter: 2017Q4

REPORT INFORMATION
  Report Type: Spontaneous
  Country: US (occurrence: US)
  Receive Date: 20171103
  Receipt Date: 20171103
  Transmission Date: 20180321
  Serious: No
  Sender: FDA-Public Use
  Company Number: US-BAYER-2017-209096

PATIENT
  Age: 67 Year
  Sex: Female

DRUGS (1)
  1. BETASERON [Suspect]
     Active Substance: INTERFERON BETA-1B
     Indication: MULTIPLE SCLEROSIS
     Dosage: 0.3 MG, QOD
     Route: 058
     Dates: start: 20130516

REACTIONS (7)
  - Hypoaesthesia [None]
  - Fatigue [None]
  - Paraesthesia [None]
  - Muscle tightness [None]
  - Injection site bruising [None]
  - Injection site erythema [None]
  - Muscle spasticity [None]

NARRATIVE: CASE EVENT DATE: 20171026
